FAERS Safety Report 24554153 (Version 1)
Quarter: 2024Q4

REPORT INFORMATION
  Report Type: Spontaneous
  Country: PL (occurrence: PL)
  Receive Date: 20241028
  Receipt Date: 20241028
  Transmission Date: 20250115
  Serious: Yes (Other)
  Sender: TWI PHARMACEUTICALS
  Company Number: PL-TWI PHARMACEUTICAL, INC-20241000192

PATIENT
  Age: 27 Year
  Sex: Female

DRUGS (6)
  1. FLUOXETINE [Suspect]
     Active Substance: FLUOXETINE HYDROCHLORIDE
     Indication: Product used for unknown indication
     Dosage: 2 DOSAGE FORM, BID (20 MG)
     Route: 065
     Dates: start: 20200216, end: 20200216
  2. CLORAZEPATE DIPOTASSIUM [Suspect]
     Active Substance: CLORAZEPATE DIPOTASSIUM
     Indication: Product used for unknown indication
     Dosage: 20 DOSAGE FORM (100 MG)
     Route: 065
     Dates: start: 20200216, end: 20200216
  3. DIAZEPAM [Suspect]
     Active Substance: DIAZEPAM
     Indication: Product used for unknown indication
     Dosage: 6 DOSAGE FORM (1 TIME 6-8 TABLETS)
     Route: 065
     Dates: start: 20200216, end: 20200216
  4. XANAX [Suspect]
     Active Substance: ALPRAZOLAM
     Indication: Product used for unknown indication
     Dosage: 4 DOSAGE FORM (4 MG)
     Route: 065
     Dates: start: 20200216, end: 20200216
  5. LORAZEPAM [Suspect]
     Active Substance: LORAZEPAM
     Indication: Product used for unknown indication
     Dosage: 4 DOSAGE FORM
     Route: 065
     Dates: start: 20200216, end: 20200216
  6. TRAMADOL [Suspect]
     Active Substance: TRAMADOL
     Indication: Product used for unknown indication
     Dosage: 2 DOSAGE FORM (200 MG)
     Route: 065
     Dates: start: 20200216, end: 20200216

REACTIONS (4)
  - Coma [Recovered/Resolved]
  - Intentional self-injury [Unknown]
  - Drug abuse [Unknown]
  - Toxicity to various agents [Unknown]

NARRATIVE: CASE EVENT DATE: 20200216
